FAERS Safety Report 4306846-2 (Version None)
Quarter: 2004Q1

REPORT INFORMATION
  Report Type: 
  Country: None (occurrence: None)
  Receive Date: 20040225
  Receipt Date: 20021113
  Transmission Date: 20041129
  Serious: Yes (Hospitalization)
  Sender: FDA-Public Use
  Company Number: 2002IC000318

PATIENT
  Age: 56 Year
  Sex: Female

DRUGS (8)
  1. FLUOROURACIL [Suspect]
     Indication: COLON CANCER
     Dosage: 750 MG; INTRAVENOUS
     Route: 042
     Dates: start: 20010613, end: 20010704
  2. ISOVORIN [Suspect]
     Indication: COLON CANCER
     Dosage: 375 MG; INTRAVENOUS
     Route: 042
     Dates: start: 20010613, end: 20010704
  3. LENDORM [Concomitant]
  4. PRIMPERAN INJ [Concomitant]
  5. LAC B [Concomitant]
  6. VOLTAREN [Concomitant]
  7. GASTER [Concomitant]
  8. BUSCOPAN [Concomitant]

REACTIONS (9)
  - BLOOD ALBUMIN DECREASED [None]
  - BLOOD SODIUM DECREASED [None]
  - BONE MARROW DEPRESSION [None]
  - DIARRHOEA [None]
  - INFECTION [None]
  - NAUSEA [None]
  - PROTEIN TOTAL DECREASED [None]
  - PYREXIA [None]
  - VOMITING [None]
